FAERS Safety Report 13058760 (Version 1)
Quarter: 2016Q4

REPORT INFORMATION
  Report Type: Spontaneous
  Country: US (occurrence: US)
  Receive Date: 20161223
  Receipt Date: 20161223
  Transmission Date: 20170207
  Serious: Yes (Death, Life-Threatening, Hospitalization)
  Sender: FDA-Public Use
  Company Number: None

PATIENT
  Age: 64 Year
  Sex: Male
  Weight: 66.5 kg

DRUGS (2)
  1. ENOXAPARIN [Suspect]
     Active Substance: ENOXAPARIN
     Indication: VASCULAR STENT THROMBOSIS
     Route: 058
     Dates: start: 20160930, end: 20161017
  2. ASPIRIN. [Suspect]
     Active Substance: ASPIRIN
     Indication: CARDIOVASCULAR DISORDER
     Route: 048
     Dates: start: 20160823, end: 20161023

REACTIONS (9)
  - Tachycardia [None]
  - Transient ischaemic attack [None]
  - Acute kidney injury [None]
  - Shock haemorrhagic [None]
  - Renal tubular necrosis [None]
  - Haemoglobin decreased [None]
  - Cerebrovascular accident [None]
  - Haemorrhage [None]
  - Gastric haemorrhage [None]

NARRATIVE: CASE EVENT DATE: 20161017
